FAERS Safety Report 20099316 (Version 1)
Quarter: 2021Q4

REPORT INFORMATION
  Report Type: Spontaneous
  Country: CN (occurrence: CN)
  Receive Date: 20211122
  Receipt Date: 20211122
  Transmission Date: 20220303
  Serious: Yes (Other)
  Sender: FDA-Public Use
  Company Number: CN-BAXTER-2021BAX036434

PATIENT
  Age: 64 Year
  Sex: Female
  Weight: 68 kg

DRUGS (10)
  1. CYCLOPHOSPHAMIDE [Suspect]
     Active Substance: CYCLOPHOSPHAMIDE
     Indication: Breast cancer female
     Dosage: 1-2 CYCLE CHEMOTHERAPY
     Route: 065
  2. CYCLOPHOSPHAMIDE [Suspect]
     Active Substance: CYCLOPHOSPHAMIDE
     Dosage: ENDOXAN 1000 MG + NS 250 ML, THIRD CHEMOTHERAPY
     Route: 041
     Dates: start: 20210920, end: 20210920
  3. CYCLOPHOSPHAMIDE [Suspect]
     Active Substance: CYCLOPHOSPHAMIDE
     Dosage: DOSE RE-INTRODUCED, ENDOXAN + NS
     Route: 041
  4. SODIUM CHLORIDE [Suspect]
     Active Substance: SODIUM CHLORIDE
     Indication: Medication dilution
     Dosage: PHARMORUBICIN 140 MG + NS 100 ML
     Route: 041
     Dates: start: 20210920, end: 20210920
  5. SODIUM CHLORIDE [Suspect]
     Active Substance: SODIUM CHLORIDE
     Dosage: ENDOXAN 1000 MG + NS 250 ML
     Route: 041
     Dates: start: 20210920, end: 20210920
  6. SODIUM CHLORIDE [Suspect]
     Active Substance: SODIUM CHLORIDE
     Dosage: DOSE RE-INTRODUCED, ENDOXAN + NS
     Route: 041
  7. SODIUM CHLORIDE [Suspect]
     Active Substance: SODIUM CHLORIDE
     Dosage: DOSE RE-INTRODUCED, PHARMORUBICIN + NS
     Route: 041
  8. EPIRUBICIN [Suspect]
     Active Substance: EPIRUBICIN
     Indication: Breast cancer female
     Dosage: 1-2 CYCLE CHEMOTHERAPY
     Route: 065
  9. EPIRUBICIN [Suspect]
     Active Substance: EPIRUBICIN
     Dosage: PHARMORUBICIN 140 MG + NS 100 ML, THIRD CHEMOTHERAPY
     Route: 041
     Dates: start: 20210920, end: 20210920
  10. EPIRUBICIN [Suspect]
     Active Substance: EPIRUBICIN
     Dosage: DOSE RE-INTRODUCED, PHARMORUBICIN + NS
     Route: 041

REACTIONS (2)
  - White blood cell count decreased [Recovered/Resolved]
  - Agranulocytosis [Recovered/Resolved]

NARRATIVE: CASE EVENT DATE: 20210927
